FAERS Safety Report 18904522 (Version 1)
Quarter: 2021Q1

REPORT INFORMATION
  Report Type: Spontaneous
  Country: US (occurrence: US)
  Receive Date: 20210217
  Receipt Date: 20210217
  Transmission Date: 20210420
  Serious: No
  Sender: FDA-Public Use
  Company Number: None

PATIENT
  Age: 34 Year
  Sex: Female
  Weight: 72.9 kg

DRUGS (2)
  1. AIMOVIG [Suspect]
     Active Substance: ERENUMAB-AOOE
     Dosage: ?          OTHER FREQUENCY:MONTHLY;?
     Route: 058
     Dates: start: 20201001, end: 20210215
  2. AIMOVIG [Concomitant]
     Active Substance: ERENUMAB-AOOE
     Dates: start: 20201001, end: 20210216

REACTIONS (1)
  - Constipation [None]

NARRATIVE: CASE EVENT DATE: 20210215
